FAERS Safety Report 9797680 (Version 1)
Quarter: 2014Q1

REPORT INFORMATION
  Report Type: Spontaneous
  Country: ES (occurrence: ES)
  Receive Date: 20140106
  Receipt Date: 20140106
  Transmission Date: 20141002
  Serious: Yes (Hospitalization, Other)
  Sender: FDA-Public Use
  Company Number: ES-ROCHE-1329378

PATIENT
  Age: 47 Year
  Sex: Male

DRUGS (1)
  1. PEGASYS [Suspect]
     Indication: HEPATITIS C
     Route: 065

REACTIONS (9)
  - Hypothyroidism [Recovered/Resolved]
  - VIth nerve paralysis [Recovered/Resolved]
  - Leukoencephalopathy [Unknown]
  - Pneumonia [Unknown]
  - Pleural effusion [Unknown]
  - Haemoptysis [Unknown]
  - Thrombocytopenia [Unknown]
  - Nausea [Unknown]
  - Abdominal pain upper [Unknown]
